FAERS Safety Report 6483578-6 (Version None)
Quarter: 2009Q4

REPORT INFORMATION
  Report Type: 
  Country: None (occurrence: None)
  Receive Date: 20091208
  Receipt Date: 20091208
  Transmission Date: 20100525
  Serious: Yes (Other)
  Sender: FDA-Public Use
  Company Number: None

PATIENT
  Age: 52 Year
  Sex: Female
  Weight: 58.514 kg

DRUGS (2)
  1. GEODON [Suspect]
     Indication: BIPOLAR DISORDER
     Dosage: 20MG DAILY PO
     Route: 048
  2. EMTRIVA [Suspect]
     Indication: HIV INFECTION
     Dosage: 200MG DAILY PO
     Route: 048

REACTIONS (4)
  - DRUG DOSE OMISSION [None]
  - MEDICATION ERROR [None]
  - PARAESTHESIA [None]
  - PRODUCT SHAPE ISSUE [None]
